FAERS Safety Report 7593471-3 (Version None)
Quarter: 2011Q3

REPORT INFORMATION
  Report Type: 
  Country: None (occurrence: None)
  Receive Date: 20110706
  Receipt Date: 20110630
  Transmission Date: 20111222
  Serious: Yes (Other)
  Sender: FDA-Public Use
  Company Number: US-PFIZER INC-2011147089

PATIENT
  Sex: Female
  Weight: 76.644 kg

DRUGS (1)
  1. LYRICA [Suspect]
     Indication: FIBROMYALGIA
     Dosage: 225 MG 2X/DAY
     Route: 048
     Dates: start: 20100101, end: 20110101

REACTIONS (1)
  - CONVULSION [None]
